FAERS Safety Report 7583319-5 (Version None)
Quarter: 2011Q2

REPORT INFORMATION
  Report Type: 
  Country: None (occurrence: None)
  Receive Date: 20110630
  Receipt Date: 20110620
  Transmission Date: 20111010
  Serious: Yes (Other)
  Sender: FDA-Public Use
  Company Number: AT-CELGENEUS-009-21880-11051055

PATIENT
  Age: 52 Year
  Sex: Male
  Weight: 82 kg

DRUGS (12)
  1. DEXAMETHASONE [Suspect]
     Indication: PERIPHERAL T-CELL LYMPHOMA UNSPECIFIED
     Route: 048
     Dates: start: 20110406, end: 20110420
  2. ENOXAPARIN [Concomitant]
     Dosage: 80 MILLIGRAM
     Route: 065
     Dates: start: 20110506
  3. VORINOSTAT [Suspect]
     Indication: PERIPHERAL T-CELL LYMPHOMA UNSPECIFIED
     Dosage: 400 MILLIGRAM
     Route: 048
     Dates: start: 20110406, end: 20110426
  4. VORINOSTAT [Suspect]
     Dosage: 100 MILLIGRAM
     Route: 048
     Dates: start: 20110511
  5. FAMOTIDINE [Concomitant]
     Dosage: 40 MILLIGRAM
     Route: 065
     Dates: start: 20110111
  6. BACTRIM [Concomitant]
     Dosage: 1 DOSAGE FORMS
     Route: 065
  7. REVLIMID [Suspect]
     Dosage: 10 MILLIGRAM
     Route: 048
     Dates: start: 20110511
  8. DEXAMETHASONE [Suspect]
     Dosage: 1.1429 MILLIGRAM
     Route: 048
     Dates: start: 20110511
  9. VALACYCLOVIR [Concomitant]
     Dosage: 500 MILLIGRAM
     Route: 065
     Dates: start: 20110111
  10. LIDAPRIM [Concomitant]
     Route: 065
     Dates: start: 20110111
  11. REVLIMID [Suspect]
     Indication: PERIPHERAL T-CELL LYMPHOMA UNSPECIFIED
     Dosage: 10 MILLIGRAM
     Route: 048
     Dates: start: 20110406, end: 20110426
  12. ENOXAPARIN [Concomitant]
     Dosage: 40 MILLIGRAM
     Route: 065
     Dates: start: 20110111, end: 20110505

REACTIONS (2)
  - THROMBOCYTOPENIA [None]
  - RENAL INFARCT [None]
